FAERS Safety Report 13419361 (Version 4)
Quarter: 2024Q2

REPORT INFORMATION
  Report Type: Spontaneous
  Country: US (occurrence: US)
  Receive Date: 20170407
  Receipt Date: 20240408
  Transmission Date: 20240716
  Serious: No
  Sender: FDA-Public Use
  Company Number: US-JNJFOC-20170315381

PATIENT
  Sex: Male

DRUGS (6)
  1. RISPERDAL [Suspect]
     Active Substance: RISPERIDONE
     Indication: Bipolar disorder
     Dosage: VARYING DOSES OF 0.25 MG, 0.5 MG VARYING FREQUENCY OF ONCE AND TWICE DAILY
     Route: 048
     Dates: start: 20061226, end: 20080629
  2. RISPERDAL [Suspect]
     Active Substance: RISPERIDONE
     Indication: Drug therapy
     Dosage: VARYING DOSES OF 0.5 MG, 1 MG, 3 MG AND 4 MG
     Route: 048
     Dates: start: 20091104, end: 20140310
  3. RISPERDAL [Suspect]
     Active Substance: RISPERIDONE
     Indication: Hallucination, auditory
  4. RISPERIDONE [Suspect]
     Active Substance: RISPERIDONE
     Indication: Bipolar disorder
     Route: 048
     Dates: start: 20061226
  5. RISPERIDONE [Suspect]
     Active Substance: RISPERIDONE
     Indication: Drug therapy
     Dosage: IN VARYING DOSES OF 0.25 MG, 0.5 MG, 1 MG, 2 MG, 3 MG AND 4 MG
     Route: 048
     Dates: start: 20080802, end: 20130121
  6. RISPERIDONE [Suspect]
     Active Substance: RISPERIDONE
     Route: 048
     Dates: end: 20140310

REACTIONS (4)
  - Emotional distress [Unknown]
  - Memory impairment [Unknown]
  - Gynaecomastia [Unknown]
  - Somnolence [Unknown]
